FAERS Safety Report 16242245 (Version 2)
Quarter: 2019Q2

REPORT INFORMATION
  Report Type: Spontaneous
  Country: US (occurrence: US)
  Receive Date: 20190426
  Receipt Date: 20190603
  Transmission Date: 20190711
  Serious: No
  Sender: FDA-Public Use
  Company Number: US-LUNDBECK-DKLU2068550

PATIENT
  Age: 2 Year
  Sex: Female

DRUGS (6)
  1. SABRIL [Suspect]
     Active Substance: VIGABATRIN
     Indication: EPILEPSY
  2. AFINITOR DISPERZ [Suspect]
     Active Substance: EVEROLIMUS
     Route: 065
  3. SABRIL [Suspect]
     Active Substance: VIGABATRIN
     Indication: PARTIAL SEIZURES
     Route: 048
  4. SABRIL [Suspect]
     Active Substance: VIGABATRIN
     Indication: SIMPLE PARTIAL SEIZURES
     Route: 048
  5. EPIDIOLEX [Concomitant]
     Active Substance: CANNABIDIOL
     Indication: PRODUCT USED FOR UNKNOWN INDICATION
     Route: 065
  6. AFINITOR DISPERZ [Suspect]
     Active Substance: EVEROLIMUS
     Indication: PRODUCT USED FOR UNKNOWN INDICATION
     Route: 065

REACTIONS (2)
  - Hand-foot-and-mouth disease [Unknown]
  - Stomatitis [Unknown]

NARRATIVE: CASE EVENT DATE: 201903
